FAERS Safety Report 5658448-3 (Version None)
Quarter: 2008Q1

REPORT INFORMATION
  Report Type: 
  Country: None (occurrence: None)
  Receive Date: 20080310
  Receipt Date: 20070215
  Transmission Date: 20080703
  Serious: No
  Sender: FDA-Public Use
  Company Number: US-BAYER-200710516BCC

PATIENT
  Age: 64 Year
  Sex: Female
  Weight: 74 kg

DRUGS (4)
  1. ALEVE [Suspect]
     Indication: ARTHRALGIA
     Dosage: TOTAL DAILY DOSE: 220 MG  UNIT DOSE: 220 MG
     Route: 048
     Dates: start: 20070215
  2. LIPITOR [Concomitant]
  3. PRILOSEC [Concomitant]
  4. STORE BRAND VITAMINS [Concomitant]

REACTIONS (1)
  - DIZZINESS [None]
